FAERS Safety Report 7546745-6 (Version None)
Quarter: 2011Q2

REPORT INFORMATION
  Report Type: 
  Country: None (occurrence: None)
  Receive Date: 20110614
  Receipt Date: 20110606
  Transmission Date: 20111010
  Serious: Yes (Hospitalization)
  Sender: FDA-Public Use
  Company Number: B0720186A

PATIENT
  Sex: Male

DRUGS (2)
  1. DEPAKENE [Concomitant]
     Indication: EPILEPSY
     Route: 048
     Dates: start: 20040101
  2. LAMICTAL [Suspect]
     Indication: EPILEPSY
     Dosage: 225MG PER DAY
     Route: 048
     Dates: start: 20110416, end: 20110509

REACTIONS (1)
  - DRUG RASH WITH EOSINOPHILIA AND SYSTEMIC SYMPTOMS [None]
